FAERS Safety Report 25189830 (Version 2)
Quarter: 2025Q2

REPORT INFORMATION
  Report Type: Report from Study
  Country: CN (occurrence: CN)
  Receive Date: 20250411
  Receipt Date: 20250418
  Transmission Date: 20250717
  Serious: Yes (Other)
  Sender: ROCHE
  Company Number: CN-ROCHE-10000255691

PATIENT

DRUGS (6)
  1. ATEZOLIZUMAB [Suspect]
     Active Substance: ATEZOLIZUMAB
     Indication: Non-small cell lung cancer stage III
     Route: 065
  2. CAMRELIZUMAB [Suspect]
     Active Substance: CAMRELIZUMAB
     Indication: Non-small cell lung cancer stage III
     Route: 065
  3. NIVOLUMAB [Suspect]
     Active Substance: NIVOLUMAB
     Indication: Non-small cell lung cancer stage III
     Route: 065
  4. SINTILIMAB [Suspect]
     Active Substance: SINTILIMAB
     Indication: Non-small cell lung cancer stage III
     Route: 065
  5. TISLELIZUMAB [Suspect]
     Active Substance: TISLELIZUMAB
     Indication: Non-small cell lung cancer stage III
     Route: 065
  6. TORIPALIMAB [Suspect]
     Active Substance: TORIPALIMAB
     Indication: Non-small cell lung cancer stage III
     Route: 065

REACTIONS (6)
  - Haematotoxicity [Unknown]
  - Pneumonitis [Unknown]
  - Oesophagitis [Unknown]
  - Gastrointestinal disorder [Unknown]
  - Myocardial injury [Unknown]
  - Hepatic function abnormal [Unknown]
